FAERS Safety Report 15331551 (Version 1)
Quarter: 2018Q4

REPORT INFORMATION
  Report Type: Spontaneous
  Country: ES (occurrence: ES)
  Receive Date: 20180829
  Receipt Date: 20180829
  Transmission Date: 20190204
  Serious: Yes (Hospitalization)
  Sender: FDA-Public Use
  Company Number: ES-TEVA-2018-ES-949239

PATIENT
  Age: 89 Year
  Sex: Female

DRUGS (7)
  1. BUPRENORFINA (814A) [Suspect]
     Active Substance: BUPRENORPHINE
     Indication: KYPHOSIS
     Route: 048
     Dates: start: 20110819, end: 20180420
  2. NOLOTIL 575 MG CAPSULAS DURAS, 20 C?PSULAS [Concomitant]
     Active Substance: METAMIZOLE MAGNESIUM
     Route: 065
     Dates: start: 2010
  3. ALPRAZOLAM (99A) [Suspect]
     Active Substance: ALPRAZOLAM
     Indication: ANXIETY
     Route: 048
     Dates: start: 20110818, end: 20180426
  4. DEPRAX 100 MG COMPRIMIDOS RECUBIERTOS CON PELICULA EFG , 30 COMPRIMIDO [Concomitant]
     Active Substance: TRAZODONE HYDROCHLORIDE
     Route: 065
     Dates: start: 20180418
  5. OMEPRAZOL MYLAN 20 MG CAPSULAS DURAS GASTRORRESISTENTES EFG , 28 C?PSU [Concomitant]
     Route: 065
     Dates: start: 2010
  6. SERC 16 MG COMPRIMIDOS , 30 COMPRIMIDOS [Concomitant]
     Route: 065
     Dates: start: 2010
  7. FERRIMANITOL OVOALBUMINA (2936A) [Concomitant]
     Route: 065
     Dates: start: 2014

REACTIONS (1)
  - Confusional state [Recovered/Resolved]

NARRATIVE: CASE EVENT DATE: 20180420
